APPROVED DRUG PRODUCT: COMPAZINE
Active Ingredient: PROCHLORPERAZINE EDISYLATE
Strength: EQ 10MG BASE/ML
Dosage Form/Route: CONCENTRATE;ORAL
Application: N011276 | Product #001
Applicant: GLAXOSMITHKLINE
Approved: Approved Prior to Jan 1, 1982 | RLD: Yes | RS: No | Type: DISCN